FAERS Safety Report 13732374 (Version 1)
Quarter: 2017Q3

REPORT INFORMATION
  Report Type: Spontaneous
  Country: US (occurrence: US)
  Receive Date: 20170707
  Receipt Date: 20170707
  Transmission Date: 20171127
  Serious: No
  Sender: FDA-Public Use
  Company Number: US-SA-2017SA098625

PATIENT

DRUGS (2)
  1. DUPIXENT [Suspect]
     Active Substance: DUPILUMAB
     Route: 065
  2. CELLCEPT [Concomitant]
     Active Substance: MYCOPHENOLATE MOFETIL\MYCOPHENOLATE MOFETIL HYDROCHLORIDE
     Route: 065

REACTIONS (6)
  - Condition aggravated [Recovering/Resolving]
  - Pruritus [Recovering/Resolving]
  - Malaise [Unknown]
  - Eczema [Recovering/Resolving]
  - Eyelid pain [Recovering/Resolving]
  - Nasopharyngitis [Unknown]
